FAERS Safety Report 9924067 (Version 1)
Quarter: 2014Q1

REPORT INFORMATION
  Report Type: Report from Study
  Country: BR (occurrence: BR)
  Receive Date: 20140225
  Receipt Date: 20140225
  Transmission Date: 20141002
  Serious: Yes (Hospitalization)
  Sender: FDA-Public Use
  Company Number: BR-US-EMD SERONO, INC.-7270430

PATIENT
  Age: 35 Year
  Sex: Male

DRUGS (4)
  1. REBIF [Suspect]
     Indication: MULTIPLE SCLEROSIS
     Dates: start: 20050201
  2. PARACETAMOL [Concomitant]
     Indication: PRODUCT USED FOR UNKNOWN INDICATION
  3. DECADRON                           /00016001/ [Concomitant]
     Indication: PRODUCT USED FOR UNKNOWN INDICATION
  4. CIMETIDINE [Concomitant]
     Indication: PRODUCT USED FOR UNKNOWN INDICATION

REACTIONS (6)
  - Ankle fracture [Recovering/Resolving]
  - Femur fracture [Recovering/Resolving]
  - Pelvic fracture [Recovering/Resolving]
  - Joint dislocation [Recovering/Resolving]
  - Fall [Recovering/Resolving]
  - Dizziness [Recovering/Resolving]
